FAERS Safety Report 13869197 (Version 3)
Quarter: 2017Q3

REPORT INFORMATION
  Report Type: Spontaneous
  Country: JP (occurrence: JP)
  Receive Date: 20170815
  Receipt Date: 20170904
  Transmission Date: 20171127
  Serious: Yes (Death, Disabling, Other)
  Sender: FDA-Public Use
  Company Number: JP-009507513-1708JPN001925J

PATIENT
  Age: 76 Year
  Sex: Female
  Weight: 39 kg

DRUGS (15)
  1. CYMBALTA [Concomitant]
     Active Substance: DULOXETINE HYDROCHLORIDE
     Indication: LUNG ADENOCARCINOMA
     Dosage: 20.0 MG, QD
     Route: 048
     Dates: start: 20170706, end: 20170726
  2. ZOPICLONE [Concomitant]
     Active Substance: ZOPICLONE
     Dosage: 3.75 MG, QD
     Route: 048
     Dates: end: 20170706
  3. FENTOS [Concomitant]
     Active Substance: FENTANYL
     Indication: LUNG ADENOCARCINOMA
     Dosage: 2.0 MG, QD
     Route: 062
     Dates: start: 20170621, end: 20170626
  4. CYTOTEC [Concomitant]
     Active Substance: MISOPROSTOL
     Indication: PROPHYLAXIS
     Dosage: 200 MG, TID
     Route: 048
     Dates: end: 20170726
  5. LOXOPROFEN [Concomitant]
     Active Substance: LOXOPROFEN
     Indication: LUNG ADENOCARCINOMA
     Dosage: 60 MG, TID
     Route: 048
     Dates: end: 20170726
  6. MAGNESIUM OXIDE. [Concomitant]
     Active Substance: MAGNESIUM OXIDE
     Dosage: 330 MG, TID
     Route: 048
     Dates: end: 20170726
  7. LANSOPRAZOLE OD [Concomitant]
     Active Substance: LANSOPRAZOLE
     Indication: PROPHYLAXIS
     Dosage: 5.0 MG, QD
     Route: 048
     Dates: start: 20170712, end: 20170726
  8. TRAVELMIN [Concomitant]
     Active Substance: DIMENHYDRINATE
     Indication: NAUSEA
     Dosage: 1.0 DF, TID
     Route: 048
     Dates: start: 20170706, end: 20170714
  9. PRIMPERAN [Concomitant]
     Active Substance: METOCLOPRAMIDE HYDROCHLORIDE
     Indication: NAUSEA
     Dosage: 10.0 MG, QD
     Route: 051
     Dates: start: 20170628, end: 20170704
  10. LECICARBON [Concomitant]
     Active Substance: SODIUM BICARBONATE\SODIUM PHOSPHATE, MONOBASIC
     Dosage: 1 DF, QD
     Route: 054
     Dates: start: 20170718, end: 20170718
  11. OPSO [Concomitant]
     Active Substance: MORPHINE HYDROCHLORIDE
     Indication: LUNG ADENOCARCINOMA
     Dosage: 10.0 MG, UNKNOWN
     Route: 048
     Dates: start: 20170622, end: 20170724
  12. DEXAMETHASONE. [Concomitant]
     Active Substance: DEXAMETHASONE
     Indication: NAUSEA
     Dosage: 1.85 MG, QD
     Route: 051
     Dates: start: 20170629, end: 20170704
  13. KEYTRUDA [Suspect]
     Active Substance: PEMBROLIZUMAB
     Indication: LUNG ADENOCARCINOMA
     Dosage: 200 MG, Q3W
     Route: 041
     Dates: start: 20170620, end: 20170711
  14. PANTETHINE [Concomitant]
     Active Substance: PANTETHINE
     Dosage: 100 MG, TID
     Route: 048
     Dates: end: 20170726
  15. FENTOS [Concomitant]
     Active Substance: FENTANYL
     Dosage: 3.0 MG, QD
     Route: 062
     Dates: start: 20170627, end: 20170726

REACTIONS (6)
  - Dry mouth [Not Recovered/Not Resolved]
  - Vomiting [Recovered/Resolved]
  - Nausea [Recovered/Resolved]
  - Death [Fatal]
  - Paraplegia [Not Recovered/Not Resolved]
  - Oedema [Not Recovered/Not Resolved]

NARRATIVE: CASE EVENT DATE: 20170620
